FAERS Safety Report 11536429 (Version 1)
Quarter: 2015Q3

REPORT INFORMATION
  Report Type: Spontaneous
  Country: PL (occurrence: PL)
  Receive Date: 20150922
  Receipt Date: 20150922
  Transmission Date: 20151125
  Serious: Yes (Hospitalization, Other)
  Sender: FDA-Public Use
  Company Number: PL-PFIZER INC-2015311292

PATIENT
  Age: 69 Year
  Sex: Male
  Weight: 100 kg

DRUGS (5)
  1. CLOPIDOGREL [Concomitant]
     Active Substance: CLOPIDOGREL BISULFATE
     Dosage: DRUG ADMINISTERED FOR MANY MONTHS - CONTINUED TREATMENT (AS OF 29.04.2015)
     Route: 048
  2. CIPROFLOXACIN. [Suspect]
     Active Substance: CIPROFLOXACIN
     Indication: SKIN ULCER
     Route: 048
     Dates: start: 20150409, end: 20150421
  3. FLUCONAZOLE. [Suspect]
     Active Substance: FLUCONAZOLE
     Indication: SKIN ULCER
     Route: 048
     Dates: start: 20150409, end: 20150421
  4. AMLODIPINE [Concomitant]
     Active Substance: AMLODIPINE BESYLATE
     Dosage: DRUG ADMINISTERED FOR MANY MONTHS - CONTINUED TREATMENT (AS OF 29.04.2015)
     Route: 048
  5. ACARD [Concomitant]
     Active Substance: ASPIRIN
     Dosage: DRUG ADMINISTERED FOR MANY MONTHS - CONTINUED TREATMENT (AS OF 29.04.2015)
     Route: 048

REACTIONS (2)
  - Rash erythematous [Recovering/Resolving]
  - Skin erosion [Recovering/Resolving]

NARRATIVE: CASE EVENT DATE: 20150415
